FAERS Safety Report 8003897-1 (Version None)
Quarter: 2011Q4

REPORT INFORMATION
  Report Type: 
  Country: None (occurrence: None)
  Receive Date: 20111222
  Receipt Date: 20111213
  Transmission Date: 20120403
  Serious: Yes (Hospitalization, Other)
  Sender: FDA-Public Use
  Company Number: US-CELGENEUS-163-C5013-11063001

PATIENT
  Sex: Male

DRUGS (11)
  1. DOCUSATE [Concomitant]
     Indication: CONSTIPATION
     Dosage: 100 MILLIGRAM
     Route: 048
  2. OMEGA-3 POLYUNSATURATED FATTY ACIDS [Concomitant]
     Dosage: 1 DOSAGE FORMS
     Route: 048
  3. FOLEY CATHETER [Concomitant]
     Route: 065
  4. OMEPRAZOLE [Concomitant]
     Dosage: 20 MILLIGRAM
     Route: 048
  5. CHOLECALCIFEROL [Concomitant]
     Dosage: 1000 IU (INTERNATIONAL UNIT)
     Route: 048
  6. ACETAMINOPHEN [Concomitant]
     Dosage: 650 MILLIGRAM
     Route: 048
  7. TAMSULOSIN HCL [Concomitant]
     Dosage: .4 MILLIGRAM
     Route: 048
  8. MULTIVITAMIN WITH MINERALS [Concomitant]
     Route: 065
  9. LENALIDOMIDE [Suspect]
     Indication: NON-HODGKIN'S LYMPHOMA
     Dosage: 25 MILLIGRAM
     Route: 048
     Dates: start: 20110510, end: 20110518
  10. ALLOPURINOL [Concomitant]
     Dosage: 300 MILLIGRAM
     Route: 048
  11. MORPHINE [Concomitant]
     Indication: PAIN
     Dosage: .5 MILLILITER
     Route: 048

REACTIONS (4)
  - HAEMATURIA [None]
  - PROSTATIC HAEMORRHAGE [None]
  - THROMBOCYTOPENIA [None]
  - URINARY RETENTION [None]
